FAERS Safety Report 25713952 (Version 1)
Quarter: 2025Q3

REPORT INFORMATION
  Report Type: Spontaneous
  Country: EU (occurrence: EU)
  Receive Date: 20250822
  Receipt Date: 20250822
  Transmission Date: 20251021
  Serious: Yes (Death, Hospitalization, Other)
  Sender: CELLTRION
  Company Number: EU-BLG-NOR/2025/06/009551

PATIENT

DRUGS (17)
  1. INFLIXIMAB [Suspect]
     Active Substance: INFLIXIMAB
     Indication: Enterocolitis
     Route: 042
  2. RITUXIMAB [Suspect]
     Active Substance: RITUXIMAB
     Indication: Chronic lymphocytic leukaemia
     Route: 042
  3. PREDNISOLONE [Suspect]
     Active Substance: PREDNISOLONE
     Indication: Chronic lymphocytic leukaemia
  4. PREDNISOLONE [Suspect]
     Active Substance: PREDNISOLONE
     Indication: Iridocyclitis
  5. PREDNISOLONE [Suspect]
     Active Substance: PREDNISOLONE
     Indication: Scleritis
  6. METHYLPREDNISOLONE [Suspect]
     Active Substance: METHYLPREDNISOLONE
     Indication: Enterocolitis
     Route: 042
  7. BENDAMUSTINE [Concomitant]
     Active Substance: BENDAMUSTINE
     Indication: Chronic lymphocytic leukaemia
  8. BENDAMUSTINE [Concomitant]
     Active Substance: BENDAMUSTINE
  9. METHOTREXATE [Concomitant]
     Active Substance: METHOTREXATE
     Indication: Iridocyclitis
     Dosage: 20 MG, WEEKLY
  10. METHOTREXATE [Concomitant]
     Active Substance: METHOTREXATE
     Indication: Scleritis
  11. PENICILLIN G [Concomitant]
     Active Substance: PENICILLIN G
     Indication: Norovirus infection
  12. GENTAMICIN [Concomitant]
     Active Substance: GENTAMICIN
     Indication: Norovirus infection
  13. GANCICLOVIR [Concomitant]
     Active Substance: GANCICLOVIR
     Indication: Enterocolitis
     Route: 042
  14. LOPERAMIDE [Concomitant]
     Active Substance: LOPERAMIDE
     Indication: Diarrhoea
  15. colestyramine [cholestyramine] [Concomitant]
     Indication: Diarrhoea
  16. PIPERACILLIN SODIUM\TAZOBACTAM SODIUM [Concomitant]
     Active Substance: PIPERACILLIN SODIUM\TAZOBACTAM SODIUM
     Indication: Escherichia infection
  17. VANCOMYCIN [Concomitant]
     Active Substance: VANCOMYCIN

REACTIONS (8)
  - Enterocolitis [Fatal]
  - Norovirus infection [Unknown]
  - Pseudomonas infection [Unknown]
  - Enterococcal infection [Unknown]
  - Escherichia infection [Unknown]
  - Cytomegalovirus infection [Unknown]
  - Intentional product use issue [Unknown]
  - Therapeutic response decreased [Unknown]
